FAERS Safety Report 5704656-2 (Version None)
Quarter: 2008Q2

REPORT INFORMATION
  Report Type: 
  Country: None (occurrence: None)
  Receive Date: 20080414
  Receipt Date: 20080402
  Transmission Date: 20081010
  Serious: Yes (Disabling)
  Sender: FDA-Public Use
  Company Number: FR-SANOFI-SYNTHELABO-A02200801127

PATIENT
  Sex: Male

DRUGS (9)
  1. COTAREG [Suspect]
     Indication: AORTIC VALVE DISEASE
     Dosage: UNK
     Route: 048
     Dates: start: 20070101
  2. ROXITHROMYCINE [Suspect]
     Indication: BRONCHITIS
     Dosage: 300 MG
     Route: 048
     Dates: start: 20071221, end: 20071228
  3. CELESTONE [Suspect]
     Indication: BRONCHITIS
     Dosage: 6 MG
     Route: 048
     Dates: start: 20071221, end: 20071228
  4. TOPLEXIL [Suspect]
     Indication: BRONCHITIS
     Dosage: UNK
     Route: 048
     Dates: start: 20071221, end: 20071228
  5. KARDEGIC [Suspect]
     Indication: ANGINA PECTORIS
     Route: 048
  6. XATRAL [Suspect]
     Indication: DYSURIA
     Route: 048
     Dates: start: 20030101
  7. AMLOR [Suspect]
     Indication: ANGINA PECTORIS
     Route: 048
     Dates: start: 20030101
  8. DISCOTRINE [Suspect]
     Indication: ANGINA PECTORIS
     Route: 062
     Dates: start: 20030101
  9. CRESTOR [Suspect]
     Indication: ANGINA PECTORIS
     Dosage: UNK
     Route: 048
     Dates: start: 20070910

REACTIONS (1)
  - TENDON RUPTURE [None]
